FAERS Safety Report 23162671 (Version 2)
Quarter: 2023Q4

REPORT INFORMATION
  Report Type: Spontaneous
  Country: GB (occurrence: GB)
  Receive Date: 20231109
  Receipt Date: 20231117
  Transmission Date: 20240110
  Serious: Yes (Hospitalization, Other)
  Sender: FDA-Public Use
  Company Number: GB-MLMSERVICE-20231026-4625372-1

PATIENT

DRUGS (11)
  1. HYDROCORTISONE [Suspect]
     Active Substance: HYDROCORTISONE
     Indication: Autoimmune enteropathy
     Dosage: 100 MG, QID
     Route: 042
  2. PREDNISOLONE [Suspect]
     Active Substance: PREDNISOLONE
     Indication: Autoimmune enteropathy
     Dosage: 40 MG (OVER 4 WEEKS)
     Route: 048
  3. PREDNISOLONE [Suspect]
     Active Substance: PREDNISOLONE
     Dosage: UNK (WEANING BY 5 MG EVERY 5 DAYS))
  4. BUDESONIDE [Suspect]
     Active Substance: BUDESONIDE
     Indication: Autoimmune enteropathy
     Dosage: 9 MG, QD
  5. LOPERAMIDE [Concomitant]
     Active Substance: LOPERAMIDE
     Dosage: 2 MG, TID
  6. COLESEVELAM [Concomitant]
     Active Substance: COLESEVELAM
     Dosage: 625 MG, BID, BILE ACID SEQUESTRANT
  7. COLESEVELAM [Concomitant]
     Active Substance: COLESEVELAM
     Dosage: 1875 MG, BID, INCREASED
  8. COLESTIPOL [Concomitant]
     Active Substance: COLESTIPOL
     Dosage: 5 G, BID
  9. CIPROFLOXACIN [Concomitant]
     Active Substance: CIPROFLOXACIN
     Dosage: 400 MG, BID
  10. CREON [Concomitant]
     Active Substance: PANCRELIPASE AMYLASE\PANCRELIPASE LIPASE\PANCRELIPASE PROTEASE
     Dosage: UNK, TID, 40 000-50 000 UNITS
  11. OCTREOTIDE [Concomitant]
     Active Substance: OCTREOTIDE
     Dosage: UNK, TID, 50-100 UG

REACTIONS (3)
  - Kaposi^s sarcoma [Recovering/Resolving]
  - Human herpesvirus 8 infection [Recovering/Resolving]
  - Drug ineffective [Unknown]
